FAERS Safety Report 17075747 (Version 1)
Quarter: 2019Q4

REPORT INFORMATION
  Report Type: Spontaneous
  Country: US (occurrence: US)
  Receive Date: 20191028
  Receipt Date: 20191028
  Transmission Date: 20200122
  Serious: Yes (Hospitalization)
  Sender: FDA-Public Use
  Company Number: None

PATIENT
  Age: 72 Year
  Sex: Female
  Weight: 112 kg

DRUGS (4)
  1. FOSAPREPITANT DIMEGLUMINE. [Suspect]
     Active Substance: FOSAPREPITANT DIMEGLUMINE
     Dates: end: 20191007
  2. DEXAMETHASONE. [Suspect]
     Active Substance: DEXAMETHASONE
     Dates: end: 20191010
  3. ONDANSETRON HCL (ZOFRAN) [Suspect]
     Active Substance: ONDANSETRON HYDROCHLORIDE
     Dates: end: 20191007
  4. OLANZAPINE. [Suspect]
     Active Substance: OLANZAPINE
     Dates: end: 20191010

REACTIONS (2)
  - Febrile neutropenia [None]
  - Chills [None]

NARRATIVE: CASE EVENT DATE: 20191022
